FAERS Safety Report 4782397-6 (Version None)
Quarter: 2005Q3

REPORT INFORMATION
  Report Type: 
  Country: None (occurrence: None)
  Receive Date: 20050914
  Receipt Date: 20050706
  Transmission Date: 20060218
  Serious: Yes (Other)
  Sender: FDA-Public Use
  Company Number: 163-20785-05070131

PATIENT

DRUGS (6)
  1. THALOMID [Suspect]
     Indication: MULTIPLE MYELOMA
     Dosage: 200-400MG, DAILY STARTING ON DAY 4 INDUCTION PHASE, ORAL; 200-400MG, DAILY MAINTENANCE PHASE, ORAL
     Route: 048
     Dates: start: 20030804
  2. THALOMID [Suspect]
     Indication: MULTIPLE MYELOMA
     Dosage: 200-400MG, DAILY STARTING ON DAY 4 INDUCTION PHASE, ORAL; 200-400MG, DAILY MAINTENANCE PHASE, ORAL
     Route: 048
     Dates: start: 20031024
  3. GENASENSE [Suspect]
     Indication: MULTIPLE MYELOMA
     Dosage: 7MG/KG/DAY ON DAY 1-7, 22-28 AND 43-49, INDUCTION PHASE, INTRAVENOUS DRIP; 7MG/KG/DAY, ON DAYS 1-7,
     Route: 041
     Dates: start: 20030801
  4. GENASENSE [Suspect]
     Indication: MULTIPLE MYELOMA
     Dosage: 7MG/KG/DAY ON DAY 1-7, 22-28 AND 43-49, INDUCTION PHASE, INTRAVENOUS DRIP; 7MG/KG/DAY, ON DAYS 1-7,
     Route: 041
     Dates: start: 20031024
  5. DEXAMETHASONE [Suspect]
     Indication: MULTIPLE MYELOMA
     Dosage: 40MG ON DAYS 4-7, 25-28 AND 46-49, INDUCTION PHASE, ORAL; 20MG ON DAYS 4-7, EVERY 5 WEEKS, MAINTENAN
     Route: 048
     Dates: start: 20030804
  6. DEXAMETHASONE [Suspect]
     Indication: MULTIPLE MYELOMA
     Dosage: 40MG ON DAYS 4-7, 25-28 AND 46-49, INDUCTION PHASE, ORAL; 20MG ON DAYS 4-7, EVERY 5 WEEKS, MAINTENAN
     Route: 048
     Dates: start: 20031024

REACTIONS (1)
  - INFECTION [None]
